FAERS Safety Report 7421204-X (Version None)
Quarter: 2011Q2

REPORT INFORMATION
  Report Type: 
  Country: None (occurrence: None)
  Receive Date: 20110418
  Receipt Date: 20110408
  Transmission Date: 20111010
  Serious: Yes (Death)
  Sender: FDA-Public Use
  Company Number: AU-ACTELION-A-CH2010-38826

PATIENT
  Sex: Female
  Weight: 56 kg

DRUGS (1)
  1. TRACLEER [Suspect]
     Indication: PULMONARY ARTERIAL HYPERTENSION
     Dosage: UNK
     Route: 048
     Dates: end: 20090501

REACTIONS (4)
  - DRUG INEFFECTIVE [None]
  - PULMONARY ARTERIAL HYPERTENSION [None]
  - CONDITION AGGRAVATED [None]
  - DYSPNOEA [None]
